FAERS Safety Report 4502389-1 (Version None)
Quarter: 2004Q4

REPORT INFORMATION
  Report Type: 
  Country: None (occurrence: None)
  Receive Date: 20041116
  Receipt Date: 20040915
  Transmission Date: 20050328
  Serious: Yes (Hospitalization, Other)
  Sender: FDA-Public Use
  Company Number: DE-BRISTOL-MYERS SQUIBB COMPANY-12702395

PATIENT
  Age: 41 Year
  Sex: Female
  Weight: 79 kg

DRUGS (4)
  1. PACLITAXEL [Suspect]
     Indication: BREAST CANCER
     Route: 042
     Dates: start: 20040901, end: 20040901
  2. COMBAREN [Suspect]
     Indication: PAIN
     Route: 048
     Dates: start: 20040907, end: 20040907
  3. NEULASTA [Suspect]
     Dates: start: 20040902, end: 20040902
  4. CARBIMAZOLE [Concomitant]
     Indication: HYPERTHYROIDISM

REACTIONS (7)
  - C-REACTIVE PROTEIN INCREASED [None]
  - EXANTHEM [None]
  - HEPATIC ENZYME INCREASED [None]
  - PAIN [None]
  - PYREXIA [None]
  - RASH [None]
  - WHITE BLOOD CELL COUNT INCREASED [None]
